FAERS Safety Report 4343165-2 (Version None)
Quarter: 2004Q2

REPORT INFORMATION
  Report Type: 
  Country: None (occurrence: None)
  Receive Date: 20040416
  Receipt Date: 20040414
  Transmission Date: 20050107
  Serious: Yes (Other)
  Sender: FDA-Public Use
  Company Number: US-JNJFOC-20040301881

PATIENT
  Age: 83 Year
  Sex: Male

DRUGS (2)
  1. RISPERDAL [Suspect]
     Indication: AGITATION
     Dosage: 0.5 MG, 1 IN 1 DAY, ORAL
     Route: 048
     Dates: start: 20040223, end: 20040224
  2. RISPERDAL [Suspect]
     Indication: DEMENTIA
     Dosage: 0.5 MG, 1 IN 1 DAY, ORAL
     Route: 048
     Dates: start: 20040223, end: 20040224

REACTIONS (3)
  - CAROTID ARTERY OCCLUSION [None]
  - CEREBROVASCULAR ACCIDENT [None]
  - SEDATION [None]
